FAERS Safety Report 21365233 (Version 3)
Quarter: 2023Q2

REPORT INFORMATION
  Report Type: Spontaneous
  Country: IT (occurrence: IT)
  Receive Date: 20220922
  Receipt Date: 20230607
  Transmission Date: 20230721
  Serious: Yes (Other)
  Sender: FDA-Public Use
  Company Number: IT-NOVARTISPH-NVSC2022IT211976

PATIENT
  Age: 57 Year
  Sex: Female

DRUGS (2)
  1. TISAGENLECLEUCEL [Suspect]
     Active Substance: TISAGENLECLEUCEL
     Indication: Diffuse large B-cell lymphoma recurrent
     Dosage: UNK
     Route: 042
     Dates: start: 202104
  2. R ESHAP [Concomitant]
     Indication: Chemotherapy
     Dosage: UNK
     Route: 065

REACTIONS (2)
  - Myelodysplastic syndrome [Unknown]
  - Second primary malignancy [Unknown]
